FAERS Safety Report 8362712 (Version 9)
Quarter: 2013Q1

REPORT INFORMATION
  Report Type: Report from Study
  Country: JP (occurrence: JP)
  Receive Date: 20120130
  Receipt Date: 20130111
  Transmission Date: 20140127
  Serious: Yes (Other)
  Sender: FDA-Public Use
  Company Number: JP-VERTEX PHARMACEUTICALS INC.-AE-2012-001421

PATIENT
  Age: 70 Year
  Sex: Female

DRUGS (8)
  1. VX-950 (TELAPREVIR) [Suspect]
     Indication: HEPATITIS C
     Dosage: 2250 MG, UNK
     Route: 048
     Dates: start: 20111216, end: 20111218
  2. VX-950 (TELAPREVIR) [Suspect]
     Dosage: 1500 MG, UNK
     Route: 048
     Dates: start: 20111219, end: 20120221
  3. RIBAVIRIN [Suspect]
     Indication: CHRONIC HEPATITIS C
     Route: 048
     Dates: start: 20111216, end: 20120104
  4. RIBAVIRIN [Suspect]
     Dosage: 400 MG, UNK
     Route: 048
     Dates: start: 20120105, end: 20120111
  5. RIBAVIRIN [Suspect]
     Dosage: 200 MG, UNK
     Route: 048
     Dates: start: 20120112, end: 20120221
  6. PEGINTRON [Suspect]
     Indication: CHRONIC HEPATITIS C
     Route: 058
     Dates: start: 20111216, end: 20120131
  7. PEGINTRON [Suspect]
     Dosage: 0.7 ?G/KG, UNK
     Route: 058
     Dates: start: 20120207, end: 20120214
  8. GASCON [Concomitant]
     Dosage: 120 MG, UNK
     Route: 048
     Dates: start: 20111216

REACTIONS (5)
  - Retinal haemorrhage [Recovered/Resolved]
  - Nausea [Recovered/Resolved]
  - Hyperuricaemia [Recovered/Resolved]
  - Pruritus [Not Recovered/Not Resolved]
  - Anaemia [Recovered/Resolved]
